FAERS Safety Report 6968175-8 (Version None)
Quarter: 2010Q3

REPORT INFORMATION
  Report Type: 
  Country: None (occurrence: None)
  Receive Date: 20100907
  Receipt Date: 20100622
  Transmission Date: 20110219
  Serious: No
  Sender: FDA-Public Use
  Company Number: US-TYCO HEALTHCARE/MALLINCKRODT-T201001497

PATIENT
  Age: 75 Year
  Sex: Male

DRUGS (1)
  1. MD-GASTROVIEW [Suspect]
     Dosage: 15 ML, SINGLE
     Route: 042

REACTIONS (1)
  - INCORRECT ROUTE OF DRUG ADMINISTRATION [None]
